FAERS Safety Report 9796950 (Version 1)
Quarter: 2014Q1

REPORT INFORMATION
  Report Type: Spontaneous
  Country: US (occurrence: US)
  Receive Date: 20140105
  Receipt Date: 20140105
  Transmission Date: 20141002
  Serious: No
  Sender: FDA-Public Use
  Company Number: US-TEVA-454479USA

PATIENT
  Sex: Female

DRUGS (1)
  1. PLAN B ONE-STEP [Suspect]
     Indication: POST COITAL CONTRACEPTION
     Dosage: 1.2 MILLIGRAM DAILY;
     Route: 048
     Dates: start: 20131220, end: 20131220

REACTIONS (1)
  - Menstruation irregular [Not Recovered/Not Resolved]
